FAERS Safety Report 10045018 (Version 2)
Quarter: 2014Q2

REPORT INFORMATION
  Report Type: Report from Study
  Country: US (occurrence: US)
  Receive Date: 20140328
  Receipt Date: 20140620
  Transmission Date: 20141212
  Serious: Yes (Hospitalization)
  Sender: FDA-Public Use
  Company Number: PHHO2014US004178

PATIENT
  Age: 46 Year
  Sex: Male
  Weight: 85.5 kg

DRUGS (3)
  1. VORICONAZOLE [Suspect]
     Dosage: UNK
     Dates: start: 20140312
  2. TACROLIMUS [Suspect]
     Indication: LIVER TRANSPLANT
     Route: 048
  3. CELLCEPT [Concomitant]

REACTIONS (1)
  - Toxicity to various agents [Not Recovered/Not Resolved]
